FAERS Safety Report 9936893 (Version 1)
Quarter: 2014Q1

REPORT INFORMATION
  Report Type: Spontaneous
  Country: US (occurrence: None)
  Receive Date: 20140115
  Receipt Date: 20140115
  Transmission Date: 20141002
  Serious: Yes (Other)
  Sender: FDA-Public Use
  Company Number: 2013US002555

PATIENT
  Age: 74 Year
  Sex: Female

DRUGS (5)
  1. ICLUSIG [Suspect]
     Indication: CHRONIC MYELOID LEUKAEMIA
     Route: 048
     Dates: start: 20130704
  2. TYLENOL (PARACETAMOL) [Concomitant]
  3. VENTOLIN (SALBUTAMOL) [Concomitant]
  4. DILTIAZEM [Concomitant]
  5. ALBUTEROL (ALBUTEROL) [Concomitant]

REACTIONS (3)
  - Blood pressure systolic increased [None]
  - Tremor [None]
  - Dyspnoea [None]
